FAERS Safety Report 7459600-7 (Version None)
Quarter: 2011Q2

REPORT INFORMATION
  Report Type: 
  Country: None (occurrence: None)
  Receive Date: 20110505
  Receipt Date: 20110429
  Transmission Date: 20111010
  Serious: Yes (Disabling, Other)
  Sender: FDA-Public Use
  Company Number: US-TEVA-279021USA

PATIENT
  Sex: Female

DRUGS (1)
  1. PROPOXYPHENE NAPSYLATE W/ ACETAMINOPHEN [Suspect]

REACTIONS (6)
  - CARDIOVASCULAR DISORDER [None]
  - VENTRICULAR FIBRILLATION [None]
  - CARDIAC DISORDER [None]
  - ATRIAL FIBRILLATION [None]
  - CARDIAC FAILURE CONGESTIVE [None]
  - ARRHYTHMIA [None]
